FAERS Safety Report 9259158 (Version 1)
Quarter: 2013Q2

REPORT INFORMATION
  Report Type: Spontaneous
  Country: US (occurrence: US)
  Receive Date: 20130426
  Receipt Date: 20130426
  Transmission Date: 20140414
  Serious: Yes (Other)
  Sender: FDA-Public Use
  Company Number: CHPA2013US007000

PATIENT
  Age: 60 Year
  Sex: Female

DRUGS (3)
  1. THERAFLU HOT LIQUID MEDICINE UNKNOWN [Suspect]
     Indication: NASOPHARYNGITIS
     Dosage: 1/2 TO 1 PACKET, PRN
     Route: 048
  2. THERAFLU HOT LIQUID MEDICINE UNKNOWN [Suspect]
     Indication: INFLUENZA
  3. FLU [Concomitant]
     Dosage: UNK, UNK

REACTIONS (2)
  - Hypertension [Unknown]
  - Underdose [Unknown]
